APPROVED DRUG PRODUCT: MORPHINE SULFATE
Active Ingredient: MORPHINE SULFATE
Strength: 8MG/ML
Dosage Form/Route: INJECTABLE;INJECTION
Application: A211452 | Product #003 | TE Code: AP
Applicant: HIKMA PHARMACEUTICALS USA INC
Approved: Jan 12, 2023 | RLD: No | RS: No | Type: RX